FAERS Safety Report 10440552 (Version 1)
Quarter: 2014Q3

REPORT INFORMATION
  Report Type: Spontaneous
  Country: US (occurrence: None)
  Receive Date: 20140908
  Receipt Date: 20140908
  Transmission Date: 20150326
  Serious: No
  Sender: FDA-Public Use
  Company Number: None

PATIENT
  Age: 49 Year
  Sex: Male
  Weight: 69.85 kg

DRUGS (2)
  1. CLONAZEPAM. [Suspect]
     Active Substance: CLONAZEPAM
     Indication: THERAPY CHANGE
     Dosage: 1 TABLET ONCE DAILY TAKEN BY MOUTH
     Route: 048
     Dates: start: 20140625, end: 20140625
  2. ALPRAZOLAM. [Suspect]
     Active Substance: ALPRAZOLAM
     Indication: THERAPY CHANGE
     Dosage: 2 PILLS ONCE DAILY TAKEN BY MOUTH
     Route: 048
     Dates: start: 20140627, end: 20140703

REACTIONS (45)
  - Speech disorder [None]
  - Micturition urgency [None]
  - Mood altered [None]
  - Formication [None]
  - Chest pain [None]
  - Insomnia [None]
  - Amnesia [None]
  - Gait disturbance [None]
  - Muscle disorder [None]
  - Bladder pain [None]
  - Nightmare [None]
  - Chills [None]
  - Dyspnoea [None]
  - Ear congestion [None]
  - Sleep disorder [None]
  - Memory impairment [None]
  - Chest discomfort [None]
  - Headache [None]
  - Tremor [None]
  - Arthralgia [None]
  - Hyperhidrosis [None]
  - Hallucinations, mixed [None]
  - Mouth haemorrhage [None]
  - Flank pain [None]
  - Nausea [None]
  - Abnormal dreams [None]
  - Dyskinesia [None]
  - Pain [None]
  - Coordination abnormal [None]
  - Dysuria [None]
  - Back pain [None]
  - Nervousness [None]
  - Feeling abnormal [None]
  - Dizziness [None]
  - Irritability [None]
  - Diarrhoea [None]
  - Mental status changes [None]
  - Pruritus [None]
  - Agitation [None]
  - Salivary hypersecretion [None]
  - Disturbance in attention [None]
  - Burning sensation [None]
  - Paraesthesia [None]
  - Anxiety [None]
  - Hyperacusis [None]

NARRATIVE: CASE EVENT DATE: 20140624
